FAERS Safety Report 17244130 (Version 3)
Quarter: 2020Q4

REPORT INFORMATION
  Report Type: Report from Study
  Country: US (occurrence: US)
  Receive Date: 20200107
  Receipt Date: 20201211
  Transmission Date: 20210113
  Serious: Yes (Hospitalization, Other)
  Sender: FDA-Public Use
  Company Number: US-BIOGEN-2019BI00822103

PATIENT
  Age: 68 Year
  Sex: Female

DRUGS (3)
  1. TECFIDERA [Suspect]
     Active Substance: DIMETHYL FUMARATE
     Dosage: MAINTENANCE DOSE
     Route: 048
  2. TECFIDERA [Suspect]
     Active Substance: DIMETHYL FUMARATE
     Dosage: MAINTENANCE DOSE
     Route: 065
     Dates: start: 20180521
  3. TECFIDERA [Suspect]
     Active Substance: DIMETHYL FUMARATE
     Indication: MULTIPLE SCLEROSIS
     Dosage: STARTING DOSE
     Route: 048

REACTIONS (13)
  - Limb asymmetry [Unknown]
  - Femur fracture [Unknown]
  - Joint injury [Unknown]
  - Pyrexia [Unknown]
  - Limb injury [Recovered/Resolved]
  - Neuropathy peripheral [Unknown]
  - Patella fracture [Recovered/Resolved]
  - Erythromelalgia [Unknown]
  - Musculoskeletal procedural complication [Unknown]
  - Back pain [Unknown]
  - Fall [Recovered/Resolved]
  - Multiple sclerosis relapse [Recovered/Resolved]
  - Choking sensation [Unknown]

NARRATIVE: CASE EVENT DATE: 2018
